FAERS Safety Report 4621643-6 (Version None)
Quarter: 2005Q1

REPORT INFORMATION
  Report Type: 
  Country: None (occurrence: None)
  Receive Date: 20050328
  Receipt Date: 20050315
  Transmission Date: 20050727
  Serious: Yes (Disabling)
  Sender: FDA-Public Use
  Company Number: 2005046221

PATIENT
  Age: 67 Year
  Sex: Male

DRUGS (10)
  1. VIAGRA [Suspect]
     Indication: ERECTILE DYSFUNCTION
     Dosage: (50 MG, AS NECCESSARY)
  2. METOPROLOL TARTRATE [Concomitant]
  3. ENALAPRIL MALEATE [Concomitant]
  4. SERTRALINE (SERTRALINE) [Concomitant]
  5. BISOPROLOL (BISOPROLOL) [Concomitant]
  6. NIFEDIPINE [Concomitant]
  7. NORTRIPTYLINE HCL [Concomitant]
  8. DOXAZOSIN (DOXAZOSIN) [Concomitant]
  9. PHENOBARBITAL TAB [Concomitant]
  10. DICLOFENAC SODIUM [Concomitant]

REACTIONS (2)
  - OPTIC ISCHAEMIC NEUROPATHY [None]
  - VISUAL FIELD DEFECT [None]
